FAERS Safety Report 18424500 (Version 3)
Quarter: 2020Q4

REPORT INFORMATION
  Report Type: Report from Study
  Country: None (occurrence: KW)
  Receive Date: 20201026
  Receipt Date: 20201112
  Transmission Date: 20210114
  Serious: Yes (Death, Hospitalization)
  Sender: FDA-Public Use
  Company Number: KW-ABBVIE-20K-091-3595791-00

PATIENT
  Age: 82 Year
  Sex: Female
  Weight: 75 kg

DRUGS (6)
  1. HUMIRA [Suspect]
     Active Substance: ADALIMUMAB
     Indication: RHEUMATOID ARTHRITIS
     Route: 058
     Dates: start: 201106, end: 20200930
  2. SEROXAT [Concomitant]
     Active Substance: PAROXETINE HYDROCHLORIDE
     Indication: ANXIOLYTIC THERAPY
     Route: 048
     Dates: end: 20200930
  3. CRESTOR [Concomitant]
     Active Substance: ROSUVASTATIN CALCIUM
     Indication: HYPERLIPIDAEMIA
     Route: 048
     Dates: end: 20200930
  4. LASIX [Concomitant]
     Active Substance: FUROSEMIDE
     Indication: PRODUCT USED FOR UNKNOWN INDICATION
     Route: 048
     Dates: end: 20200930
  5. EXFORGE HCT [Concomitant]
     Active Substance: AMLODIPINE BESYLATE\HYDROCHLOROTHIAZIDE\VALSARTAN
     Indication: HYPERTENSION
     Dosage: 5MG/160MG/1.25MG
     Route: 048
     Dates: end: 20200930
  6. JANUMET XR [Concomitant]
     Active Substance: METFORMIN HYDROCHLORIDE\SITAGLIPTIN PHOSPHATE
     Indication: DIABETES MELLITUS
     Dosage: 50/1GM
     Route: 048
     Dates: end: 20200930

REACTIONS (9)
  - Nervous system disorder [Fatal]
  - Infection [Fatal]
  - Acute respiratory failure [Fatal]
  - Pneumonia [Fatal]
  - Blood glucose increased [Not Recovered/Not Resolved]
  - Asthenia [Fatal]
  - Chronic disease [Fatal]
  - Disease complication [Fatal]
  - COVID-19 [Fatal]

NARRATIVE: CASE EVENT DATE: 20200930
